FAERS Safety Report 7900983-9 (Version None)
Quarter: 2011Q4

REPORT INFORMATION
  Report Type: 
  Country: None (occurrence: None)
  Receive Date: 20111108
  Receipt Date: 20111103
  Transmission Date: 20120403
  Serious: No
  Sender: FDA-Public Use
  Company Number: US-TEVA-308059USA

PATIENT

DRUGS (2)
  1. PROAIR HFA [Suspect]
     Route: 055
  2. OTHER MEDICATIONS [Suspect]

REACTIONS (1)
  - DRUG HYPERSENSITIVITY [None]
